FAERS Safety Report 23739004 (Version 2)
Quarter: 2024Q3

REPORT INFORMATION
  Report Type: Report from Study
  Country: US (occurrence: US)
  Receive Date: 20240413
  Receipt Date: 20240830
  Transmission Date: 20241017
  Serious: Yes (Hospitalization)
  Sender: ABBVIE
  Company Number: US-ABBVIE-5713291

PATIENT
  Age: 80 Year
  Sex: Male
  Weight: 79.378 kg

DRUGS (7)
  1. RINVOQ [Suspect]
     Active Substance: UPADACITINIB
     Indication: Colitis ulcerative
     Dosage: LAST ADMIN DATE: 2023
     Route: 048
     Dates: start: 20230414
  2. RINVOQ [Suspect]
     Active Substance: UPADACITINIB
     Indication: Colitis ulcerative
     Dosage: FORM STRENGTH: 45MG
     Route: 048
     Dates: start: 202307, end: 202310
  3. RINVOQ [Suspect]
     Active Substance: UPADACITINIB
     Indication: Colitis ulcerative
     Dosage: FORM STRENGTH: 15MG
     Route: 048
     Dates: start: 202310
  4. PRAVASTATIN [Concomitant]
     Active Substance: PRAVASTATIN
     Indication: Product used for unknown indication
  5. TAMSULOSIN [Concomitant]
     Active Substance: TAMSULOSIN
     Indication: Product used for unknown indication
  6. LOSARTAN [Concomitant]
     Active Substance: LOSARTAN\LOSARTAN POTASSIUM
     Indication: Product used for unknown indication
  7. METFORMIN [Concomitant]
     Active Substance: METFORMIN HYDROCHLORIDE
     Indication: Product used for unknown indication

REACTIONS (2)
  - Pruritus [Not Recovered/Not Resolved]
  - Wound haemorrhage [Unknown]

NARRATIVE: CASE EVENT DATE: 20231001
